FAERS Safety Report 15893689 (Version 5)
Quarter: 2019Q2

REPORT INFORMATION
  Report Type: Report from Study
  Country: US (occurrence: US)
  Receive Date: 20190131
  Receipt Date: 20190618
  Transmission Date: 20190711
  Serious: Yes (Other)
  Sender: FDA-Public Use
  Company Number: US-PFIZER INC-2019017818

PATIENT
  Age: 64 Year
  Sex: Female

DRUGS (6)
  1. IBRANCE [Suspect]
     Active Substance: PALBOCICLIB
     Dosage: 125 MG, CYCLIC (DAILY, MONDAY THROUGH FRIDAY, OFF SATURDAY AND SUNDAY)
     Route: 048
     Dates: start: 20181228
  2. IBRANCE [Suspect]
     Active Substance: PALBOCICLIB
     Dosage: 100 MG, CYCLIC, (DAILY 21 DAYS OF A 28 DAY CYCLE)
     Route: 048
     Dates: start: 20190216
  3. IBRANCE [Suspect]
     Active Substance: PALBOCICLIB
     Dosage: 125 MG, CYCLIC, (28 DAY CYCLE ,DAILY MONDAY - FRIDAY, OFF SAT/SUN)
     Route: 048
     Dates: start: 20190107
  4. IBRANCE [Suspect]
     Active Substance: PALBOCICLIB
     Dosage: 125 MG, CYCLIC(DAILY 21 DAYS OF A 28 DAY CYCLE)
     Route: 048
     Dates: start: 20181231, end: 20190104
  5. IBRANCE [Suspect]
     Active Substance: PALBOCICLIB
     Indication: BREAST CANCER
     Dosage: 125 MG, CYCLIC (1 CAPSULE 21 DAYS ON, 7 DAYS OFF)
     Route: 048
     Dates: start: 20181214, end: 20181227
  6. LETROZOLE. [Concomitant]
     Active Substance: LETROZOLE
     Dosage: UNK

REACTIONS (4)
  - Fatigue [Recovered/Resolved]
  - Cough [Recovered/Resolved]
  - Bone marrow failure [Not Recovered/Not Resolved]
  - Leukopenia [Unknown]
